FAERS Safety Report 9498407 (Version 1)
Quarter: 2013Q3

REPORT INFORMATION
  Report Type: Spontaneous
  Country: US (occurrence: US)
  Receive Date: 20130904
  Receipt Date: 20130904
  Transmission Date: 20140515
  Serious: Yes (Other)
  Sender: FDA-Public Use
  Company Number: US-GLAXOSMITHKLINE-A1039338A

PATIENT
  Age: 76 Year
  Sex: Male

DRUGS (5)
  1. LAMICTAL [Suspect]
     Indication: CONVULSION
     Dosage: 250MG TWICE PER DAY
     Route: 048
     Dates: start: 201202
  2. LORAZEPAM [Concomitant]
  3. LISINOPRIL [Concomitant]
  4. TAMSULOSIN [Concomitant]
  5. MELATONIN [Concomitant]

REACTIONS (3)
  - Grand mal convulsion [Recovered/Resolved]
  - Vomiting [Recovered/Resolved]
  - Drug level decreased [Recovered/Resolved]
